FAERS Safety Report 21019233 (Version 2)
Quarter: 2024Q4

REPORT INFORMATION
  Report Type: Spontaneous
  Country: US (occurrence: US)
  Receive Date: 20220628
  Receipt Date: 20241022
  Transmission Date: 20250115
  Serious: Yes (Other)
  Sender: JAZZ
  Company Number: US-JAZZ-2022-US-003723

PATIENT
  Age: 40 Year
  Sex: Male

DRUGS (4)
  1. SODIUM OXYBATE [Suspect]
     Active Substance: SODIUM OXYBATE
     Indication: Myoclonus
  2. SODIUM OXYBATE [Suspect]
     Active Substance: SODIUM OXYBATE
     Indication: Mucolipidosis type I
  3. CLONAZEPAM [Concomitant]
     Active Substance: CLONAZEPAM
     Dosage: 1 MILLIGRAM, BID
  4. ZONISAMIDE [Concomitant]
     Active Substance: ZONISAMIDE
     Dosage: 300 MILLIGRAM, QD

REACTIONS (2)
  - Hallucination, visual [Unknown]
  - Off label use [Unknown]
